FAERS Safety Report 5109209-5 (Version None)
Quarter: 2006Q3

REPORT INFORMATION
  Report Type: 
  Country: None (occurrence: None)
  Receive Date: 20060920
  Receipt Date: 20060911
  Transmission Date: 20061208
  Serious: Yes (Other)
  Sender: FDA-Public Use
  Company Number: DK-BRISTOL-MYERS SQUIBB COMPANY-13504998

PATIENT
  Age: 55 Year
  Sex: Female

DRUGS (5)
  1. ETOPOSIDE [Suspect]
     Indication: LYMPHOMA
  2. DOXORUBICIN [Suspect]
     Indication: LYMPHOMA
  3. VINCRISTINE [Suspect]
     Indication: LYMPHOMA
  4. CYCLOSPORINE [Suspect]
     Indication: LYMPHOMA
  5. PREDNISOLONE [Suspect]
     Indication: LYMPHOMA

REACTIONS (1)
  - THROMBOPHLEBITIS [None]
